FAERS Safety Report 5875743-3 (Version None)
Quarter: 2008Q3

REPORT INFORMATION
  Report Type: 
  Country: None (occurrence: None)
  Receive Date: 20080905
  Receipt Date: 20080826
  Transmission Date: 20090109
  Serious: Yes (Other)
  Sender: FDA-Public Use
  Company Number: 51804

PATIENT
  Age: 59 Year
  Sex: Male

DRUGS (1)
  1. LEUCOVORIN CALCIUM [Suspect]
     Indication: COLON CANCER
     Dosage: 200MG/M2, 1 IN 2 WK, IV
     Route: 042
     Dates: start: 20061121, end: 20070424

REACTIONS (6)
  - ANTIPHOSPHOLIPID ANTIBODIES POSITIVE [None]
  - FOCAL NODULAR HYPERPLASIA [None]
  - HYPERTROPHY [None]
  - PORTAL HYPERTENSION [None]
  - PORTAL VEIN THROMBOSIS [None]
  - SPLENOMEGALY [None]
